FAERS Safety Report 16453347 (Version 2)
Quarter: 2019Q2

REPORT INFORMATION
  Report Type: Spontaneous
  Country: US (occurrence: US)
  Receive Date: 20190619
  Receipt Date: 20190624
  Transmission Date: 20190711
  Serious: No
  Sender: FDA-Public Use
  Company Number: US-SA-2019SA162729

PATIENT
  Age: 67 Year
  Sex: Female

DRUGS (1)
  1. PRALUENT [Suspect]
     Active Substance: ALIROCUMAB
     Indication: BLOOD CHOLESTEROL INCREASED
     Dosage: 75 MG, QOW
     Dates: start: 201904

REACTIONS (5)
  - Pain in extremity [Unknown]
  - Muscular weakness [Unknown]
  - Rash pruritic [Unknown]
  - Injection site rash [Unknown]
  - Injection site erythema [Unknown]

NARRATIVE: CASE EVENT DATE: 2019
